FAERS Safety Report 23848354 (Version 1)
Quarter: 2024Q2

REPORT INFORMATION
  Report Type: Spontaneous
  Country: US (occurrence: US)
  Receive Date: 20240513
  Receipt Date: 20240513
  Transmission Date: 20240716
  Serious: No
  Sender: FDA-Public Use
  Company Number: US-TEVA-VS-3190880

PATIENT
  Age: 53 Year
  Sex: Male

DRUGS (5)
  1. HYDROCHLOROTHIAZIDE [Suspect]
     Active Substance: HYDROCHLOROTHIAZIDE
     Indication: Product used for unknown indication
     Route: 048
  2. Albuterol HFA (Salbutamol) Nebuliser solution, 0.83% [Concomitant]
  3. ATIVAN [Concomitant]
     Active Substance: LORAZEPAM
  4. VIBERZI [Concomitant]
     Active Substance: ELUXADOLINE
  5. BUSPIRONE [Concomitant]
     Active Substance: BUSPIRONE HYDROCHLORIDE

REACTIONS (5)
  - Joint swelling [Not Recovered/Not Resolved]
  - Urinary incontinence [Not Recovered/Not Resolved]
  - Bone pain [Unknown]
  - Fatigue [Unknown]
  - Loss of personal independence in daily activities [Unknown]
